FAERS Safety Report 10245217 (Version 1)
Quarter: 2014Q2

REPORT INFORMATION
  Report Type: Spontaneous
  Country: CH (occurrence: CH)
  Receive Date: 20140618
  Receipt Date: 20140618
  Transmission Date: 20141212
  Serious: Yes (Hospitalization)
  Sender: FDA-Public Use
  Company Number: CH-TEVA-487828ISR

PATIENT
  Age: 56 Year
  Sex: Male

DRUGS (12)
  1. NOPIL FORTE [Suspect]
     Indication: RENAL TRANSPLANT
     Dosage: 1 DOSAGE FORMS DAILY; 1 DF = 800MG SULFAMETHOXAZOLE + 40MG TRIMETHOPRIM
     Route: 048
     Dates: start: 2014
  2. NOPIL FORTE [Interacting]
     Dosage: 1 DOSAGE FORMS DAILY; 1 DF = 800MG SULFAMETHOXAZOLE + 40MG TRIMETHOPRIM
     Route: 048
     Dates: start: 201401, end: 201402
  3. PROGRAF [Interacting]
     Indication: RENAL TRANSPLANT
     Dosage: 5 MILLIGRAM DAILY;
     Route: 048
     Dates: start: 201401
  4. CELLCEPT 500MG TABLET [Interacting]
     Indication: RENAL TRANSPLANT
     Dosage: 1000 MILLIGRAM DAILY; DISCONTINUED BETWEEN 25-FEB-2014 AND 28-FEB-2014
     Route: 048
     Dates: start: 201401, end: 201402
  5. VALCYTE [Interacting]
     Indication: RENAL TRANSPLANT
     Dosage: 450 MILLIGRAM DAILY;
     Route: 048
     Dates: start: 201401
  6. AMPHO-MORONAL [Interacting]
     Indication: RENAL TRANSPLANT
     Dosage: 500 MILLIMOL DAILY; DISCONTINUED BETWEEN 25-FEB-2014 AND 28-FEB-2014
     Route: 048
     Dates: start: 201401, end: 201402
  7. PANTOZOL 40MG TABLETTEN [Interacting]
     Indication: RENAL TRANSPLANT
     Dosage: 40 MILLIGRAM DAILY;
     Route: 048
     Dates: start: 201401
  8. PREDNISON [Concomitant]
     Indication: RENAL TRANSPLANT
     Dosage: 25 MILLIGRAM DAILY;
     Route: 065
  9. TENORMIN [Concomitant]
     Indication: RENAL TRANSPLANT
     Dosage: 1 DOSAGE FORMS DAILY;
     Route: 065
     Dates: start: 2014
  10. TENORMIN [Concomitant]
     Dosage: 1 DOSAGE FORMS DAILY;
     Route: 065
     Dates: end: 2014
  11. CALCIMAGON D3 [Concomitant]
     Indication: RENAL TRANSPLANT
     Dosage: 2 DOSAGE FORMS DAILY;
     Route: 065
  12. SORTIS [Concomitant]
     Indication: RENAL TRANSPLANT
     Dosage: 40 MILLIGRAM DAILY;
     Route: 065

REACTIONS (5)
  - Hyperkalaemia [Recovered/Resolved]
  - Diarrhoea [Recovered/Resolved]
  - Metabolic acidosis [Unknown]
  - Renal tubular acidosis [Unknown]
  - Drug interaction [Recovered/Resolved]
